FAERS Safety Report 21795966 (Version 1)
Quarter: 2022Q4

REPORT INFORMATION
  Report Type: Spontaneous
  Country: AT (occurrence: AT)
  Receive Date: 20221229
  Receipt Date: 20221229
  Transmission Date: 20230113
  Serious: Yes (Other)
  Sender: FDA-Public Use
  Company Number: None

PATIENT
  Age: 85 Year
  Sex: Male

DRUGS (18)
  1. LORAZEPAM [Suspect]
     Active Substance: LORAZEPAM
     Dosage: 1 MG
     Dates: start: 20220901
  2. CANDESARTAN [Suspect]
     Active Substance: CANDESARTAN
     Dosage: 8 MG
     Dates: start: 20220928
  3. HALDOL [Suspect]
     Active Substance: HALOPERIDOL
     Dosage: 2 MG
     Dates: start: 20220920, end: 20220926
  4. MIRTAZAPINE [Suspect]
     Active Substance: MIRTAZAPINE
     Dosage: 30 MG
  5. NITRAZEPAM [Suspect]
     Active Substance: NITRAZEPAM
     Dosage: 3.75 MG
     Dates: start: 20220913, end: 20220926
  6. RISPERIDONE [Suspect]
     Active Substance: RISPERIDONE
     Dosage: 2 MG
     Dates: start: 20220831, end: 20220902
  7. RISPERIDONE [Suspect]
     Active Substance: RISPERIDONE
     Dosage: 1 MG
     Dates: start: 20220903, end: 20220916
  8. SERTRALINE [Suspect]
     Active Substance: SERTRALINE HYDROCHLORIDE
     Dosage: 50 MG
  9. VITAMINS WITH MINERALS [Concomitant]
     Active Substance: MINERALS\VITAMINS
     Dosage: UNK
  10. CEFUROXIME [Concomitant]
     Active Substance: CEFUROXIME
     Dosage: 250 MG
     Dates: start: 20220913, end: 20220919
  11. ELOMEL [Concomitant]
     Dosage: 500 ML
     Dates: start: 20220831, end: 20220907
  12. ERLEADA [Concomitant]
     Active Substance: APALUTAMIDE
     Dosage: 60 MG/M3
  13. MOVICOL [Concomitant]
     Active Substance: POLYETHYLENE GLYCOL 3350\POTASSIUM CHLORIDE\SODIUM BICARBONATE\SODIUM CHLORIDE
     Dosage: 1 DF
     Dates: start: 20220912
  14. NOVALGIN (METAMIZOLE SODIUM) [Concomitant]
     Active Substance: METAMIZOLE SODIUM
     Dosage: 1500 MG
     Dates: start: 20220924, end: 20220925
  15. SODIUM LACTATE [Concomitant]
     Active Substance: SODIUM LACTATE
     Dosage: 500 ML
     Dates: start: 20220901, end: 20220929
  16. SEROQUEL [Concomitant]
     Active Substance: QUETIAPINE FUMARATE
     Dosage: 50 MG
     Dates: start: 20220926, end: 20220927
  17. TRENANTONE [Concomitant]
     Active Substance: LEUPROLIDE ACETATE
     Dosage: 1 DF, EVERY 3 MONTHS
     Dates: start: 202207
  18. MORPHINE SULFATE [Concomitant]
     Active Substance: MORPHINE SULFATE
     Dosage: 10 MG
     Dates: start: 20220925

REACTIONS (1)
  - Leukopenia [Recovered/Resolved]

NARRATIVE: CASE EVENT DATE: 20220903
